FAERS Safety Report 20016010 (Version 1)
Quarter: 2021Q4

REPORT INFORMATION
  Report Type: Spontaneous
  Country: US (occurrence: None)
  Receive Date: 20211102
  Receipt Date: 20211102
  Transmission Date: 20220303
  Serious: No
  Sender: FDA-Public Use
  Company Number: None

PATIENT
  Age: 74 Year
  Sex: Female
  Weight: 62.1 kg

DRUGS (2)
  1. CEFTRIAXONE [Suspect]
     Active Substance: CEFTRIAXONE
     Indication: Osteomyelitis
     Dosage: FREQUENCY : DAILY;?
     Route: 042
     Dates: start: 20211009, end: 20211101
  2. TIGECYCLINE [Concomitant]
     Active Substance: TIGECYCLINE
     Dates: start: 20211009

REACTIONS (6)
  - Pain in extremity [None]
  - Pain in extremity [None]
  - Chest pain [None]
  - Paraesthesia [None]
  - Therapy cessation [None]
  - Infusion related reaction [None]

NARRATIVE: CASE EVENT DATE: 20211101
